FAERS Safety Report 6023462-5 (Version None)
Quarter: 2008Q4

REPORT INFORMATION
  Report Type: 
  Country: None (occurrence: None)
  Receive Date: 20081230
  Receipt Date: 20081216
  Transmission Date: 20090506
  Serious: Yes (Death)
  Sender: FDA-Public Use
  Company Number: FR-GENENTECH-274462

PATIENT
  Age: 49 Year
  Sex: Female

DRUGS (2)
  1. RITUXIMAB [Suspect]
     Indication: LYMPHOMA
     Dosage: 700 MG, UNK
     Route: 042
     Dates: start: 20080326, end: 20080521
  2. RITUXIMAB [Suspect]
     Dosage: 350 MG, UNK
     Dates: start: 20080410

REACTIONS (1)
  - GRAFT VERSUS HOST DISEASE [None]
